FAERS Safety Report 8835188 (Version 2)
Quarter: 2012Q4

REPORT INFORMATION
  Report Type: 
  Country: JP (occurrence: JP)
  Receive Date: 20121011
  Receipt Date: 20121018
  Transmission Date: 20130627
  Serious: Yes (Hospitalization, Other)
  Sender: FDA-Public Use
  Company Number: JP-PFIZER INC-2012244584

PATIENT
  Age: 65 Year
  Sex: Female

DRUGS (1)
  1. MEDROL [Suspect]
     Indication: SCLERODERMA
     Dosage: 8 mg/day
     Route: 048
     Dates: start: 20111019

REACTIONS (1)
  - Scleroderma renal crisis [Recovering/Resolving]
